FAERS Safety Report 15516327 (Version 1)
Quarter: 2018Q4

REPORT INFORMATION
  Report Type: Spontaneous
  Country: US (occurrence: US)
  Receive Date: 20181017
  Receipt Date: 20181017
  Transmission Date: 20190205
  Serious: Yes (Life-Threatening, Hospitalization, Disabling, Other)
  Sender: FDA-Public Use
  Company Number: None

PATIENT
  Age: 35 Year
  Sex: Male
  Weight: 100.35 kg

DRUGS (6)
  1. INVEGA SUSTENNA [Suspect]
     Active Substance: PALIPERIDONE PALMITATE
     Indication: SCHIZOPHRENIA
     Dosage: ?          QUANTITY:1 INJECTION(S);OTHER FREQUENCY:28 DAYS;?
     Route: 030
     Dates: start: 20100810, end: 20110803
  2. METFORMIN [Concomitant]
     Active Substance: METFORMIN HYDROCHLORIDE
  3. ABILIFY MAINTENA [Suspect]
     Active Substance: ARIPIPRAZOLE
     Indication: SCHIZOPHRENIA
     Dosage: ?          QUANTITY:400 INJECTION(S);OTHER FREQUENCY:28 DAYS;?
     Route: 030
     Dates: start: 20140304, end: 20181017
  4. VIAGRA GENERIC [Concomitant]
  5. INVEGA SUSTENNA [Suspect]
     Active Substance: PALIPERIDONE PALMITATE
     Indication: BIPOLAR I DISORDER
     Dosage: ?          QUANTITY:1 INJECTION(S);OTHER FREQUENCY:28 DAYS;?
     Route: 030
     Dates: start: 20100810, end: 20110803
  6. ABILIFY MONTANO [Concomitant]

REACTIONS (7)
  - Caesarean section [None]
  - Speech disorder [None]
  - Coagulopathy [None]
  - Low birth weight baby [None]
  - Motor developmental delay [None]
  - Therapy change [None]
  - Attention deficit/hyperactivity disorder [None]

NARRATIVE: CASE EVENT DATE: 20110208
